FAERS Safety Report 15699332 (Version 1)
Quarter: 2018Q4

REPORT INFORMATION
  Report Type: Spontaneous
  Country: FR (occurrence: FR)
  Receive Date: 20181207
  Receipt Date: 20181207
  Transmission Date: 20190205
  Serious: Yes (Other)
  Sender: FDA-Public Use
  Company Number: PHHY2018FR173040

PATIENT
  Sex: Female
  Weight: 3.9 kg

DRUGS (5)
  1. AMOXICILLIN. [Suspect]
     Active Substance: AMOXICILLIN
     Indication: FOETAL EXPOSURE DURING PREGNANCY
     Dosage: 2 G, UNK
     Route: 064
  2. PENTASTARCH [Suspect]
     Active Substance: PENTASTARCH
     Indication: FOETAL EXPOSURE DURING PREGNANCY
     Dosage: 500 ML, UNK
     Route: 064
  3. SALINE [Suspect]
     Active Substance: SODIUM CHLORIDE
     Indication: FOETAL EXPOSURE DURING PREGNANCY
     Dosage: 1 UNK, UNK
     Route: 064
  4. METHYLPREDNISOLONE. [Suspect]
     Active Substance: METHYLPREDNISOLONE
     Indication: FOETAL EXPOSURE DURING PREGNANCY
     Dosage: 120 MG, UNK
     Route: 064
  5. EPINEPHRINE. [Suspect]
     Active Substance: EPINEPHRINE
     Indication: FOETAL EXPOSURE DURING PREGNANCY
     Dosage: 50 UG, UNK
     Route: 064

REACTIONS (3)
  - Foetal distress syndrome [Recovered/Resolved]
  - Acidosis [Recovered/Resolved]
  - Foetal exposure during pregnancy [Unknown]
